FAERS Safety Report 13902924 (Version 8)
Quarter: 2017Q4

REPORT INFORMATION
  Report Type: Report from Study
  Country: IT (occurrence: IT)
  Receive Date: 20170824
  Receipt Date: 20171011
  Transmission Date: 20180320
  Serious: Yes (Hospitalization)
  Sender: FDA-Public Use
  Company Number: IT-ROCHE-1966465

PATIENT
  Age: 81 Year
  Sex: Male
  Weight: 78 kg

DRUGS (7)
  1. CARDIOASPIRINE [Concomitant]
     Active Substance: ASPIRIN
     Route: 048
  2. TOTALIP [Concomitant]
     Active Substance: ATORVASTATIN
     Route: 048
  3. PARACETAMOL [Concomitant]
     Active Substance: ACETAMINOPHEN
     Indication: TUMOUR PAIN
     Route: 048
  4. PLETAL [Concomitant]
     Active Substance: CILOSTAZOL
     Route: 048
  5. ATEZOLIZUMAB. [Suspect]
     Active Substance: ATEZOLIZUMAB
     Indication: MALIGNANT URINARY TRACT NEOPLASM
     Dosage: DATE OF MOST RECENT DOSE PRIOR TO AE ONSET: 30/JUN/2017
     Route: 042
     Dates: start: 20170609
  6. PROSTIDE (ITALY) [Concomitant]
     Route: 048
  7. XATRAL [Concomitant]
     Active Substance: ALFUZOSIN
     Route: 048

REACTIONS (1)
  - Myocardial necrosis marker increased [Recovered/Resolved]

NARRATIVE: CASE EVENT DATE: 20170717
